FAERS Safety Report 8009117-6 (Version None)
Quarter: 2011Q4

REPORT INFORMATION
  Report Type: 
  Country: None (occurrence: None)
  Receive Date: 20111227
  Receipt Date: 20111219
  Transmission Date: 20120403
  Serious: Yes (Hospitalization, Other)
  Sender: FDA-Public Use
  Company Number: US-ASTRAZENECA-2011SE34158

PATIENT
  Age: 79 Year
  Sex: Female

DRUGS (1)
  1. NEXIUM [Suspect]
     Route: 048

REACTIONS (8)
  - CEREBROVASCULAR ACCIDENT [None]
  - ANORECTAL INFECTION [None]
  - GASTRIC INFECTION [None]
  - INFLUENZA [None]
  - DIABETES MELLITUS [None]
  - FALL [None]
  - HERNIA [None]
  - PNEUMONIA [None]
